FAERS Safety Report 14407595 (Version 1)
Quarter: 2018Q1

REPORT INFORMATION
  Report Type: Spontaneous
  Country: US (occurrence: US)
  Receive Date: 20180116
  Receipt Date: 20180116
  Transmission Date: 20180509
  Serious: Yes (Other)
  Sender: FDA-Public Use
  Company Number: None

PATIENT
  Age: 52 Year
  Sex: Female
  Weight: 58.5 kg

DRUGS (3)
  1. PICATO [Suspect]
     Active Substance: INGENOL MEBUTATE
     Indication: HYPERKERATOSIS
     Route: 061
  2. VITAMIN B [Concomitant]
     Active Substance: VITAMIN B
  3. HYALURONIC ACID [Concomitant]
     Active Substance: HYALURONIC ACID

REACTIONS (4)
  - Hypoaesthesia [None]
  - Skin disorder [None]
  - Swelling face [None]
  - Blister [None]

NARRATIVE: CASE EVENT DATE: 20180101
